FAERS Safety Report 14768497 (Version 1)
Quarter: 2018Q2

REPORT INFORMATION
  Report Type: Report from Study
  Country: None (occurrence: CZ)
  Receive Date: 20180417
  Receipt Date: 20180417
  Transmission Date: 20180711
  Serious: Yes (Other)
  Sender: FDA-Public Use
  Company Number: CZ-ABBVIE-18K-217-2273177-00

PATIENT
  Age: 44 Year
  Sex: Male
  Weight: 89 kg

DRUGS (1)
  1. HUMIRA [Suspect]
     Active Substance: ADALIMUMAB
     Indication: ANKYLOSING SPONDYLITIS
     Route: 058
     Dates: start: 20090923, end: 20180221

REACTIONS (2)
  - Interferon gamma release assay positive [Unknown]
  - Tuberculosis [Unknown]

NARRATIVE: CASE EVENT DATE: 20180221
